FAERS Safety Report 5383165-7 (Version None)
Quarter: 2007Q3

REPORT INFORMATION
  Report Type: 
  Country: None (occurrence: None)
  Receive Date: 20070705
  Receipt Date: 20070618
  Transmission Date: 20080115
  Serious: Yes (Other)
  Sender: FDA-Public Use
  Company Number: L07-ESP-02651-01

PATIENT
  Age: 32 Year
  Sex: Female

DRUGS (5)
  1. CARBAMAZEPINE [Suspect]
     Indication: DEPRESSION
  2. CLONAZEPAM [Concomitant]
  3. REBOXETINE [Concomitant]
  4. SULBUTIAMINE (SULBUTIAMINE) [Concomitant]
  5. CELECOXIB [Concomitant]

REACTIONS (4)
  - GAMMA-GLUTAMYLTRANSFERASE INCREASED [None]
  - HYPERTRICHOSIS [None]
  - PORPHYRIA NON-ACUTE [None]
  - TRANSAMINASES INCREASED [None]
